FAERS Safety Report 5463010-1 (Version None)
Quarter: 2007Q3

REPORT INFORMATION
  Report Type: 
  Country: None (occurrence: None)
  Receive Date: 20070918
  Receipt Date: 20070918
  Transmission Date: 20080115
  Serious: Yes (Other)
  Sender: FDA-Public Use
  Company Number: None

PATIENT
  Sex: Male

DRUGS (6)
  1. REVLIMID [Suspect]
     Indication: MULTIPLE MYELOMA
     Dosage: 25MG QOD X 21D/28D PO
     Route: 048
  2. IBUPROFEN [Suspect]
     Indication: MULTIPLE MYELOMA
     Dosage: 220MG OR 200MG PRN UP TO TID PO
     Route: 048
     Dates: end: 20070821
  3. DEXAMETHASONE 0.5MG TAB [Concomitant]
  4. OMEPRAZOLE [Concomitant]
  5. METHADONE HCL [Concomitant]
  6. ASPIRIN [Concomitant]

REACTIONS (5)
  - ARTHRALGIA [None]
  - BLOOD CREATININE INCREASED [None]
  - MUSCLE SPASMS [None]
  - PAIN IN EXTREMITY [None]
  - PRURITUS [None]
